FAERS Safety Report 7328087-7 (Version None)
Quarter: 2011Q1

REPORT INFORMATION
  Report Type: 
  Country: None (occurrence: None)
  Receive Date: 20110217
  Receipt Date: 20110207
  Transmission Date: 20110831
  Serious: Yes (Hospitalization)
  Sender: FDA-Public Use
  Company Number: WAES 1102USA00794

PATIENT
  Sex: Female
  Weight: 56.6996 kg

DRUGS (6)
  1. LEVOXYL [Concomitant]
  2. SIMVASTATIN [Concomitant]
  3. XALATAN [Suspect]
     Indication: GLAUCOMA
     Dosage: 1 DRPS/DAILY/OPHT
     Route: 047
     Dates: start: 20060101
  4. CRESTOR [Suspect]
     Indication: BLOOD CHOLESTEROL INCREASED
     Dosage: PO
     Route: 048
     Dates: start: 20090101, end: 20100101
  5. COSOPT [Suspect]
     Indication: GLAUCOMA
     Dosage: OPHT
     Route: 047
  6. ZOLOFT [Concomitant]

REACTIONS (3)
  - GLAUCOMA [None]
  - POST PROCEDURAL COMPLICATION [None]
  - FALL [None]
